FAERS Safety Report 23272785 (Version 1)
Quarter: 2023Q4

REPORT INFORMATION
  Report Type: Spontaneous
  Country: ES (occurrence: ES)
  Receive Date: 20231207
  Receipt Date: 20231207
  Transmission Date: 20240110
  Serious: Yes (Other)
  Sender: FDA-Public Use
  Company Number: ES-FERRINGPH-2023FE05800

PATIENT

DRUGS (7)
  1. DINOPROSTONE [Suspect]
     Active Substance: DINOPROSTONE
     Indication: Labour induction
     Dosage: UNK
     Route: 067
     Dates: start: 20231113, end: 20231114
  2. TERBASMIN [TERBUTALINE] [Concomitant]
     Dosage: 500 UG/M2, 3 TIMES DAILY
     Dates: start: 20190122
  3. FLUTICASONE PROPIONATE\FORMOTEROL FUMARATE [Concomitant]
     Active Substance: FLUTICASONE PROPIONATE\FORMOTEROL FUMARATE
     Dosage: 2 DOSAGE FORM, 2 TIMES DAILY
     Dates: start: 20200227
  4. LORATADINE [Concomitant]
     Active Substance: LORATADINE
     Dosage: 10 MG, 1 TIME DAILY
     Route: 048
     Dates: start: 20221005
  5. TROMALYT [Concomitant]
     Active Substance: ASPIRIN
     Dosage: 150 MG, 1 TIME DAILY
     Route: 048
     Dates: start: 20230525, end: 20231113
  6. MOMETASONE FUROATE [Concomitant]
     Active Substance: MOMETASONE FUROATE
     Dosage: 50 UG/M2, 2 TIMES DAILY
     Route: 045
     Dates: start: 20221005
  7. IBUPROFENO CINFA [Concomitant]
     Dosage: 600 MG, 3 TIMES DAILY
     Route: 048
     Dates: start: 20230311

REACTIONS (2)
  - Uterine tachysystole [Recovered/Resolved]
  - Precipitate labour [Unknown]

NARRATIVE: CASE EVENT DATE: 20231114
